FAERS Safety Report 5985346-8 (Version None)
Quarter: 2008Q4

REPORT INFORMATION
  Report Type: 
  Country: None (occurrence: None)
  Receive Date: 20081208
  Receipt Date: 20080317
  Transmission Date: 20090506
  Serious: No
  Sender: FDA-Public Use
  Company Number: US-AMGEN-KDL270088

PATIENT
  Sex: Female

DRUGS (3)
  1. ENBREL [Suspect]
     Indication: RHEUMATOID ARTHRITIS
     Route: 058
     Dates: start: 20071218
  2. PLAQUENIL [Concomitant]
     Dates: start: 20070101
  3. METHOTREXATE [Concomitant]
     Route: 048
     Dates: start: 20060801

REACTIONS (3)
  - DRY MOUTH [None]
  - SENSITIVITY OF TEETH [None]
  - TOOTH HYPOPLASIA [None]
